FAERS Safety Report 12949120 (Version 2)
Quarter: 2016Q4

REPORT INFORMATION
  Report Type: Spontaneous
  Country: US (occurrence: US)
  Receive Date: 20161117
  Receipt Date: 20161205
  Transmission Date: 20170207
  Serious: No
  Sender: FDA-Public Use
  Company Number: US-PFIZER INC-2016529233

PATIENT
  Sex: Female

DRUGS (1)
  1. XELJANZ [Suspect]
     Active Substance: TOFACITINIB CITRATE
     Indication: RHEUMATOID ARTHRITIS
     Dosage: 5 MG, 2X/DAY

REACTIONS (6)
  - Mobility decreased [Unknown]
  - Condition aggravated [Unknown]
  - Musculoskeletal pain [Unknown]
  - Synovitis [Unknown]
  - Musculoskeletal stiffness [Unknown]
  - Arthralgia [Unknown]
